FAERS Safety Report 24567172 (Version 2)
Quarter: 2024Q4

REPORT INFORMATION
  Report Type: Spontaneous
  Country: IT (occurrence: IT)
  Receive Date: 20241030
  Receipt Date: 20241105
  Transmission Date: 20250115
  Serious: Yes (Death, Life-Threatening, Hospitalization)
  Sender: NOVARTIS
  Company Number: IT-002147023-NVSC2024IT210539

PATIENT
  Sex: Male

DRUGS (2)
  1. KYMRIAH [Suspect]
     Active Substance: TISAGENLECLEUCEL
     Indication: B-cell type acute leukaemia
     Dosage: UNK, ONCE/SINGLE
     Route: 042
     Dates: start: 20220927, end: 20220927
  2. FLUDARABINE PHOSPHATE [Suspect]
     Active Substance: FLUDARABINE PHOSPHATE
     Indication: B-cell type acute leukaemia
     Dosage: UNK, QD (30 MG/MQ/DAY)
     Route: 042
     Dates: start: 20220921, end: 20220924

REACTIONS (15)
  - Bone marrow failure [Fatal]
  - Neutropenia [Fatal]
  - Sepsis [Fatal]
  - Thrombocytopenia [Fatal]
  - Haemorrhage urinary tract [Fatal]
  - Gastrointestinal haemorrhage [Fatal]
  - Cytopenia [Fatal]
  - Immune effector cell-associated neurotoxicity syndrome [Fatal]
  - Apallic syndrome [Fatal]
  - Asthenia [Fatal]
  - Dysphonia [Fatal]
  - Somnolence [Fatal]
  - Quadriparesis [Fatal]
  - Aphasia [Fatal]
  - Stupor [Fatal]

NARRATIVE: CASE EVENT DATE: 20220928
